FAERS Safety Report 7607710-3 (Version None)
Quarter: 2011Q3

REPORT INFORMATION
  Report Type: 
  Country: None (occurrence: None)
  Receive Date: 20110713
  Receipt Date: 20110519
  Transmission Date: 20111222
  Serious: Yes (Other)
  Sender: FDA-Public Use
  Company Number: PHHY2010US44571

PATIENT
  Sex: Male
  Weight: 91.61 kg

DRUGS (7)
  1. FOLIC ACID [Concomitant]
  2. FLONASE [Concomitant]
  3. LIPITOR [Concomitant]
     Dosage: 20 MG, DAILY
  4. SULFASALAZINE [Concomitant]
     Dosage: 500 MG, QID
  5. IMODIUM [Concomitant]
     Dosage: 2 MG, PRN
  6. VALTURNA [Suspect]
     Dosage: 300/320 MG DAILY
  7. TYLENOL-500 [Concomitant]

REACTIONS (9)
  - PROTEINURIA [None]
  - FATIGUE [None]
  - HYPERTENSION [None]
  - RENAL DISORDER [None]
  - HYPERCHOLESTEROLAEMIA [None]
  - MYALGIA [None]
  - ANGIOPATHY [None]
  - VITAMIN D DEFICIENCY [None]
  - ARTHRALGIA [None]
